FAERS Safety Report 6498061-1 (Version None)
Quarter: 2009Q4

REPORT INFORMATION
  Report Type: 
  Country: None (occurrence: None)
  Receive Date: 20091215
  Receipt Date: 20091211
  Transmission Date: 20100525
  Serious: Yes (Death)
  Sender: FDA-Public Use
  Company Number: PHEH2009US17679

PATIENT
  Sex: Female

DRUGS (2)
  1. SANDIMMUNE [Suspect]
     Dosage: 50 MG, BID
     Route: 048
  2. CELLCEPT [Concomitant]
     Dosage: 1000 MG, BID

REACTIONS (1)
  - DEATH [None]
